FAERS Safety Report 19291179 (Version 1)
Quarter: 2021Q2

REPORT INFORMATION
  Report Type: Spontaneous
  Country: SE (occurrence: SE)
  Receive Date: 20210523
  Receipt Date: 20210523
  Transmission Date: 20210717
  Serious: Yes (Hospitalization)
  Sender: FDA-Public Use
  Company Number: SE-TEVA-2021-SE-1913498

PATIENT
  Age: 76 Year
  Sex: Male
  Weight: 86 kg

DRUGS (6)
  1. EZETIMIB ACTAVIS 10 MG TABLETT [Suspect]
     Active Substance: EZETIMIBE
     Indication: ANGINA PECTORIS
     Dosage: 10 MILLIGRAM DAILY;
     Route: 048
     Dates: start: 20210130, end: 20210315
  2. TROMBYL 75 MG TABLETT [Concomitant]
     Active Substance: ASPIRIN
     Dosage: 75 MILLIGRAM DAILY;
     Route: 048
     Dates: start: 2016
  3. FIASP 100 ENHETER/ML INJEKTIONSVATSKA, LOSNING I CYLINDERAMPULL [Concomitant]
     Dosage: 30 IU (INTERNATIONAL UNIT) DAILY;
     Route: 058
     Dates: start: 20200715
  4. IMDUR 30 MG DEPOTTABLETT [Concomitant]
     Dosage: 30 MILLIGRAM DAILY;
     Route: 048
     Dates: start: 20210301
  5. BETOLVEX 1 MG FILMDRAGERAD TABLETT [Concomitant]
     Dosage: 1 MILLIGRAM DAILY;
     Route: 048
     Dates: start: 2011
  6. ROSUVASTATIN STADA 10 MG FILMDRAGERAD TABLETT [Concomitant]
     Dosage: 10 MILLIGRAM DAILY;
     Route: 048
     Dates: start: 2017

REACTIONS (1)
  - Biliary colic [Recovered/Resolved]

NARRATIVE: CASE EVENT DATE: 20210310
